FAERS Safety Report 19402708 (Version 1)
Quarter: 2021Q2

REPORT INFORMATION
  Report Type: Other
  Country: FR (occurrence: FR)
  Receive Date: 20210611
  Receipt Date: 20210611
  Transmission Date: 20210717
  Serious: Yes (Other)
  Sender: FDA-Public Use
  Company Number: FR-CADILA HEALTHCARE LIMITED-FR-ZYDUS-066670

PATIENT

DRUGS (9)
  1. MIDAZOLAM. [Suspect]
     Active Substance: MIDAZOLAM
     Indication: SEDATION
     Dosage: D LAI 1 ST ADMINISTRATION: D10 (INTERVAL 1 HR)
     Route: 042
     Dates: start: 20210419, end: 20210509
  2. PROPOFOL. [Suspect]
     Active Substance: PROPOFOL
     Indication: SEDATION
     Dosage: D LAI 1 ST ADMINISTRATION: D16, (INTERVAL 1 HR)
     Route: 042
     Dates: start: 20210414, end: 20210511
  3. SUFENTANIL [Suspect]
     Active Substance: SUFENTANIL
     Indication: SEDATION
     Dosage: 10 UG / HOUR 1ST ADMINISTRATION TIME: D16
     Route: 042
     Dates: start: 20210414, end: 20210524
  4. URAPIDIL [Suspect]
     Active Substance: URAPIDIL
     Indication: HYPERTENSION
     Dosage: 232 MG, 13 MG / HOUR 1ST ADMINISTRATION TIME: D4
     Route: 042
     Dates: start: 20210426, end: 20210430
  5. FUROSEMIDE. [Suspect]
     Active Substance: FUROSEMIDE
     Indication: HYPERTENSION
     Dosage: 40 MILLIGRAM, QD
     Route: 042
     Dates: start: 20210426, end: 20210430
  6. NICARDIPINE HYDROCHLORIDE. [Suspect]
     Active Substance: NICARDIPINE HYDROCHLORIDE
     Indication: HYPERTENSION
     Dosage: 2 MG / H D DAY 1ST ADMINISTRATION: D11
     Route: 042
     Dates: start: 20210418, end: 20210418
  7. LOVENOX [Suspect]
     Active Substance: ENOXAPARIN SODIUM
     Indication: THROMBOSIS PROPHYLAXIS
     Dosage: 0.8 ML 2 FOIS PAR JOUR
     Route: 058
     Dates: start: 20210414
  8. AMLODIPINE [Suspect]
     Active Substance: AMLODIPINE BESYLATE
     Indication: HYPERTENSION
     Dosage: 10 MILLIGRAM, QD
     Route: 048
     Dates: start: 20210510, end: 20210511
  9. TAZOCILLINE [Suspect]
     Active Substance: PIPERACILLIN SODIUM\TAZOBACTAM SODIUM
     Indication: INFECTION
     Dosage: 4 GRAM, QD
     Route: 042
     Dates: start: 20210428, end: 20210429

REACTIONS (1)
  - Drug reaction with eosinophilia and systemic symptoms [Recovering/Resolving]

NARRATIVE: CASE EVENT DATE: 20210429
